FAERS Safety Report 11681761 (Version 1)
Quarter: 2015Q4

REPORT INFORMATION
  Report Type: Spontaneous
  Country: US (occurrence: None)
  Receive Date: 20151028
  Receipt Date: 20151028
  Transmission Date: 20160304
  Serious: Yes (Hospitalization)
  Sender: FDA-Public Use
  Company Number: None

PATIENT
  Age: 2 Year
  Sex: Male

DRUGS (1)
  1. GENOTROPIN [Suspect]
     Active Substance: SOMATROPIN
     Route: 058
     Dates: start: 201412

REACTIONS (3)
  - Cardiac function disturbance postoperative [None]
  - Cardiac ventricular disorder [None]
  - Cardiac disorder [None]

NARRATIVE: CASE EVENT DATE: 2015
